FAERS Safety Report 4937017-4 (Version None)
Quarter: 2006Q1

REPORT INFORMATION
  Report Type: 
  Country: None (occurrence: None)
  Receive Date: 20060309
  Receipt Date: 20051125
  Transmission Date: 20060701
  Serious: Yes (Life-Threatening, Hospitalization, Other)
  Sender: FDA-Public Use
  Company Number: IE-SANOFI-SYNTHELABO-A01200508257

PATIENT
  Sex: Female
  Weight: 42 kg

DRUGS (16)
  1. ELOXATIN [Suspect]
     Indication: COLON CANCER
     Route: 041
     Dates: start: 20051107, end: 20051107
  2. ELOXATIN [Suspect]
     Route: 041
     Dates: start: 20051121, end: 20051121
  3. FLUOROURACIL [Suspect]
     Dosage: 560 MG BOLUS, 3360MG OVER 46 HOURS
     Route: 041
     Dates: start: 20051107, end: 20051108
  4. FLUOROURACIL [Suspect]
     Dosage: 560 MG BOLUS, 3360MG OVER 46 HOURS
     Route: 041
     Dates: start: 20051121, end: 20051122
  5. LEUCOVORIN CALCIUM [Suspect]
     Route: 041
     Dates: start: 20051107, end: 20051107
  6. LEUCOVORIN CALCIUM [Suspect]
     Route: 041
     Dates: start: 20051121, end: 20051121
  7. BEVACIZUMAB [Suspect]
     Route: 041
     Dates: start: 20051107, end: 20051107
  8. BEVACIZUMAB [Suspect]
     Route: 041
     Dates: start: 20051121, end: 20051121
  9. DOMPERIDONE [Concomitant]
     Indication: DRUG USE FOR UNKNOWN INDICATION
  10. CYCLIZINE [Concomitant]
     Indication: DRUG USE FOR UNKNOWN INDICATION
  11. ONDANSETRON [Concomitant]
     Route: 042
     Dates: start: 20051107, end: 20051107
  12. ONDANSETRON [Concomitant]
     Route: 048
     Dates: start: 20051108, end: 20051110
  13. ONDANSETRON [Concomitant]
     Route: 042
     Dates: start: 20051121, end: 20051121
  14. ONDANSETRON [Concomitant]
     Route: 048
     Dates: start: 20051122, end: 20051124
  15. DEXAMETHASONE [Concomitant]
     Route: 042
     Dates: start: 20051107, end: 20051107
  16. DEXAMETHASONE [Concomitant]
     Route: 048
     Dates: start: 20051121, end: 20051121

REACTIONS (8)
  - COMA [None]
  - DIARRHOEA [None]
  - HYPONATRAEMIA [None]
  - LOSS OF CONSCIOUSNESS [None]
  - NAUSEA [None]
  - NERVOUSNESS [None]
  - PARALYSIS [None]
  - VOMITING [None]
